FAERS Safety Report 11881400 (Version 2)
Quarter: 2016Q1

REPORT INFORMATION
  Report Type: Report from Study
  Country: GB (occurrence: GB)
  Receive Date: 20151231
  Receipt Date: 20160111
  Transmission Date: 20160526
  Serious: Yes (Other)
  Sender: FDA-Public Use
  Company Number: GB-ACCORD-036580

PATIENT
  Age: 65 Year
  Sex: Female
  Weight: 58.4 kg

DRUGS (12)
  1. IRINOTECAN [Suspect]
     Active Substance: IRINOTECAN
     Indication: COLORECTAL CANCER
     Dosage: DAY 1 OF EACH 14 DAY CYCLE
     Route: 042
     Dates: start: 20150702
  2. CODEINE [Concomitant]
     Active Substance: CODEINE
     Indication: STOMA CARE
     Dosage: 240 MG
     Route: 048
     Dates: start: 20150501
  3. DEXAMETHASONE. [Concomitant]
     Active Substance: DEXAMETHASONE
     Indication: PROPHYLAXIS OF NAUSEA AND VOMITING
     Route: 048
     Dates: start: 20150813, end: 20150815
  4. GAVISCON [Concomitant]
     Active Substance: ALUMINUM HYDROXIDE\MAGNESIUM CARBONATE
     Indication: NAUSEA
     Route: 048
     Dates: start: 20150622
  5. LANSOPRAZOLE. [Concomitant]
     Active Substance: LANSOPRAZOLE
     Indication: GASTROOESOPHAGEAL REFLUX PROPHYLAXIS
     Route: 048
     Dates: start: 20150501
  6. FLUOROURACIL. [Suspect]
     Active Substance: FLUOROURACIL
     Indication: COLORECTAL CANCER
     Dosage: OVER 15 MIN; DAY 1 OF EACH 21 DAY CYCLE.
     Route: 040
     Dates: start: 20150702
  7. METOCLOPRAMIDE. [Concomitant]
     Active Substance: METOCLOPRAMIDE
     Indication: NAUSEA
     Route: 048
     Dates: start: 20150703
  8. VELIPARIB [Suspect]
     Active Substance: VELIPARIB
     Indication: COLORECTAL CANCER
     Dosage: DAY 2 THROUGH 5 OF EACH 21 DAY CYCLE
     Route: 048
     Dates: start: 20150702
  9. DIORALYTE [Concomitant]
     Active Substance: CITRIC ACID MONOHYDRATE\DEXTROSE\POTASSIUM CATION\SODIUM CHLORIDE
     Indication: STOMA CARE
     Route: 048
     Dates: start: 20150501
  10. LOPERAMIDE [Concomitant]
     Active Substance: LOPERAMIDE
     Indication: STOMA CARE
     Route: 048
     Dates: start: 20150501
  11. CYCLIZINE [Concomitant]
     Active Substance: CYCLIZINE
     Indication: NAUSEA
     Route: 048
     Dates: start: 20150812
  12. CALCIUM FOLINATE/FOLINIC ACID/SODIUM FOLINATE [Concomitant]
     Indication: COLORECTAL CANCER
     Dates: start: 20150702, end: 20150812

REACTIONS (5)
  - Toxicity to various agents [Unknown]
  - Hyponatraemia [Recovered/Resolved]
  - Renal impairment [Unknown]
  - Gastrointestinal stoma complication [Unknown]
  - Blood creatinine increased [Recovered/Resolved]

NARRATIVE: CASE EVENT DATE: 20150825
